FAERS Safety Report 15573666 (Version 2)
Quarter: 2019Q1

REPORT INFORMATION
  Report Type: Spontaneous
  Country: US (occurrence: US)
  Receive Date: 20181101
  Receipt Date: 20190110
  Transmission Date: 20190417
  Serious: Yes (Hospitalization, Other)
  Sender: FDA-Public Use
  Company Number: US-ASTRAZENECA-2018SF41879

PATIENT
  Age: 801 Month
  Sex: Female
  Weight: 51.7 kg

DRUGS (11)
  1. SENNA S [Concomitant]
     Active Substance: DOCUSATE SODIUM\SENNA LEAF
     Dosage: TWO TIMES A DAY
     Route: 048
  2. CYMBALTA [Concomitant]
     Active Substance: DULOXETINE HYDROCHLORIDE
     Indication: PAIN
     Dosage: 120MG
  3. TOPAMAX [Concomitant]
     Active Substance: TOPIRAMATE
     Indication: PAIN
     Dosage: 100MG
  4. MIRALAX [Concomitant]
     Active Substance: POLYETHYLENE GLYCOL 3350
     Dosage: DAILY
     Route: 048
  5. OXYCODONE [Concomitant]
     Active Substance: OXYCODONE
     Dosage: 5.0MG AS REQUIRED
     Route: 048
  6. ATIVAN [Concomitant]
     Active Substance: LORAZEPAM
     Indication: ANXIETY
     Route: 048
  7. TOPAMAX [Concomitant]
     Active Substance: TOPIRAMATE
     Indication: PAIN
     Dosage: 200MG
     Dates: start: 201810, end: 201810
  8. MOVANTIK [Suspect]
     Active Substance: NALOXEGOL OXALATE
     Indication: CONSTIPATION
     Route: 048
     Dates: start: 201810, end: 20181023
  9. CYMBALTA [Concomitant]
     Active Substance: DULOXETINE HYDROCHLORIDE
     Indication: PAIN
     Dosage: 60MG
  10. DILAUDID [Concomitant]
     Active Substance: HYDROMORPHONE HYDROCHLORIDE
  11. MS CONTIN [Concomitant]
     Active Substance: MORPHINE SULFATE
     Route: 048

REACTIONS (5)
  - Dyskinesia [Recovering/Resolving]
  - Tremor [Recovering/Resolving]
  - Urinary retention [Recovered/Resolved]
  - Ileus [Recovered/Resolved]
  - Intestinal obstruction [Unknown]

NARRATIVE: CASE EVENT DATE: 201810
